FAERS Safety Report 14555729 (Version 1)
Quarter: 2018Q1

REPORT INFORMATION
  Report Type: Report from Study
  Country: US (occurrence: US)
  Receive Date: 20180221
  Receipt Date: 20180221
  Transmission Date: 20180509
  Serious: Yes (Other)
  Sender: FDA-Public Use
  Company Number: US-BEH-2018087947

PATIENT
  Age: 54 Year
  Sex: Female
  Weight: 47.62 kg

DRUGS (1)
  1. ZEMAIRA [Suspect]
     Active Substance: .ALPHA.1-PROTEINASE INHIBITOR HUMAN
     Indication: ALPHA-1 ANTI-TRYPSIN DEFICIENCY
     Dosage: 3 VIALS WEEKLY
     Route: 042

REACTIONS (1)
  - Device related infection [Unknown]

NARRATIVE: CASE EVENT DATE: 20180201
